FAERS Safety Report 22587579 (Version 4)
Quarter: 2024Q1

REPORT INFORMATION
  Report Type: Report from Study
  Country: JP (occurrence: JP)
  Receive Date: 20230612
  Receipt Date: 20240131
  Transmission Date: 20240409
  Serious: Yes (Death, Hospitalization)
  Sender: FDA-Public Use
  Company Number: JP-ABBVIE-5280975

PATIENT
  Age: 85 Year
  Sex: Male

DRUGS (27)
  1. VENCLEXTA [Suspect]
     Active Substance: VENETOCLAX
     Indication: Acute myeloid leukaemia
     Route: 048
     Dates: start: 20220513, end: 20220530
  2. VENCLEXTA [Suspect]
     Active Substance: VENETOCLAX
     Indication: Acute myeloid leukaemia
     Route: 048
     Dates: start: 20220329, end: 20220329
  3. VENCLEXTA [Suspect]
     Active Substance: VENETOCLAX
     Indication: Acute myeloid leukaemia
     Route: 048
     Dates: start: 20220328, end: 20220328
  4. VENCLEXTA [Suspect]
     Active Substance: VENETOCLAX
     Indication: Acute myeloid leukaemia
     Route: 048
     Dates: start: 20220426, end: 20220512
  5. VENCLEXTA [Suspect]
     Active Substance: VENETOCLAX
     Indication: Acute myeloid leukaemia
     Route: 048
     Dates: start: 20220620, end: 20220721
  6. VENCLEXTA [Suspect]
     Active Substance: VENETOCLAX
     Indication: Acute myeloid leukaemia
     Route: 048
     Dates: start: 20220330, end: 20220425
  7. VORICONAZOLE [Concomitant]
     Active Substance: VORICONAZOLE
     Indication: Infection prophylaxis
     Dates: start: 20220517, end: 20220818
  8. LEVOFLOXACIN HEMIHYDRATE [Concomitant]
     Active Substance: LEVOFLOXACIN
     Indication: Infection prophylaxis
     Dates: start: 20220415, end: 20220419
  9. LEVOFLOXACIN HEMIHYDRATE [Concomitant]
     Active Substance: LEVOFLOXACIN
     Indication: Infection prophylaxis
     Route: 048
     Dates: start: 20220502, end: 20220818
  10. ISEPAMICIN SULFATE [Concomitant]
     Active Substance: ISEPAMICIN SULFATE
     Indication: Infection prophylaxis
     Dates: start: 20220530, end: 20220601
  11. ISEPAMICIN SULFATE [Concomitant]
     Active Substance: ISEPAMICIN SULFATE
     Indication: Infection prophylaxis
     Dates: start: 20220504, end: 20220506
  12. LINEZOLID [Concomitant]
     Active Substance: LINEZOLID
     Indication: Infection prophylaxis
     Dates: start: 20220513, end: 20220523
  13. LINEZOLID [Concomitant]
     Active Substance: LINEZOLID
     Indication: Infection prophylaxis
     Route: 048
     Dates: start: 20220513, end: 20220523
  14. LINEZOLID [Concomitant]
     Active Substance: LINEZOLID
     Indication: Infection prophylaxis
     Dates: start: 20220609, end: 20220620
  15. LINEZOLID [Concomitant]
     Active Substance: LINEZOLID
     Indication: Infection prophylaxis
     Route: 048
     Dates: start: 20220718, end: 20220728
  16. LINEZOLID [Concomitant]
     Active Substance: LINEZOLID
     Indication: Infection prophylaxis
     Dates: start: 20220718, end: 20220728
  17. LINEZOLID [Concomitant]
     Active Substance: LINEZOLID
     Indication: Infection prophylaxis
     Route: 048
     Dates: start: 20220815, end: 20220818
  18. LINEZOLID [Concomitant]
     Active Substance: LINEZOLID
     Indication: Infection prophylaxis
     Dates: start: 20220815, end: 20220818
  19. LINEZOLID [Concomitant]
     Active Substance: LINEZOLID
     Indication: Infection prophylaxis
     Route: 048
     Dates: start: 20220609, end: 20220620
  20. AZACITIDINE [Concomitant]
     Active Substance: AZACITIDINE
     Indication: Acute myeloid leukaemia
     Dosage: 75 MG/M2
     Dates: start: 20220328, end: 20220328
  21. AZACITIDINE [Concomitant]
     Active Substance: AZACITIDINE
     Indication: Acute myeloid leukaemia
     Dosage: 75 MG/M2
     Dates: start: 20220329, end: 20220329
  22. AZACITIDINE [Concomitant]
     Active Substance: AZACITIDINE
     Indication: Acute myeloid leukaemia
     Dosage: 75 MG/M2
     Dates: start: 20220330, end: 20220403
  23. AZACITIDINE [Concomitant]
     Active Substance: AZACITIDINE
     Indication: Acute myeloid leukaemia
     Dosage: 75 MG/M2
     Dates: start: 20220426, end: 20220502
  24. AZACITIDINE [Concomitant]
     Active Substance: AZACITIDINE
     Indication: Acute myeloid leukaemia
     Dosage: 75 MG/M2
     Dates: start: 20220620, end: 20220626
  25. ITRACONAZOLE [Concomitant]
     Active Substance: ITRACONAZOLE
     Indication: Infection prophylaxis
     Route: 048
     Dates: start: 20220513, end: 20220516
  26. SULFAMETHOXAZOLE AND TRIMETHOPRIM [Concomitant]
     Active Substance: SULFAMETHOXAZOLE\TRIMETHOPRIM
     Indication: Infection prophylaxis
     Route: 048
     Dates: start: 20220328, end: 20220708
  27. MICAFUNGIN [Concomitant]
     Active Substance: MICAFUNGIN SODIUM
     Indication: Infection prophylaxis
     Dosage: SODIUM HYDRATE
     Dates: start: 20220505, end: 20220518

REACTIONS (5)
  - Acute myeloid leukaemia [Fatal]
  - Septic shock [Recovered/Resolved]
  - Neutrophil count decreased [Unknown]
  - Pyrexia [Recovering/Resolving]
  - Compression fracture [Recovering/Resolving]

NARRATIVE: CASE EVENT DATE: 20220504
